FAERS Safety Report 25570380 (Version 1)
Quarter: 2025Q3

REPORT INFORMATION
  Report Type: Spontaneous
  Country: EU (occurrence: EU)
  Receive Date: 20250717
  Receipt Date: 20250717
  Transmission Date: 20251021
  Serious: Yes (Life-Threatening, Hospitalization, Other)
  Sender: CHEPLAPHARM
  Company Number: None

PATIENT
  Age: 33 Year
  Sex: Male

DRUGS (8)
  1. CLONAZEPAM [Suspect]
     Active Substance: CLONAZEPAM
  2. COCAINE [Suspect]
     Active Substance: COCAINE
  3. COCAINE [Suspect]
     Active Substance: COCAINE
  4. PREGABALIN [Suspect]
     Active Substance: PREGABALIN
  5. DIAZEPAM [Suspect]
     Active Substance: DIAZEPAM
  6. TRAMADOL [Suspect]
     Active Substance: TRAMADOL
  7. QUETIAPINE [Concomitant]
     Active Substance: QUETIAPINE
  8. TRIMEPRAZINE [Concomitant]
     Active Substance: TRIMEPRAZINE

REACTIONS (6)
  - Coma [Unknown]
  - Cardio-respiratory arrest [Recovered/Resolved]
  - Bradycardia [Unknown]
  - Pneumonia aspiration [Unknown]
  - Drug use disorder [Unknown]
  - Miosis [Unknown]
